FAERS Safety Report 16400224 (Version 1)
Quarter: 2019Q2

REPORT INFORMATION
  Report Type: Spontaneous
  Country: US (occurrence: US)
  Receive Date: 20190606
  Receipt Date: 20190606
  Transmission Date: 20190711
  Serious: No
  Sender: FDA-Public Use
  Company Number: US-ALLERGAN-1832580US

PATIENT
  Age: 35 Year
  Sex: Female
  Weight: 68.03 kg

DRUGS (2)
  1. KYBELLA [Suspect]
     Active Substance: DEOXYCHOLIC ACID
     Indication: FAT TISSUE INCREASED
     Dosage: 6 ML, SINGLE (3 VIALS)
     Route: 058
     Dates: start: 20180625, end: 20180625
  2. DEXTROAMPHETAMINE. [Concomitant]
     Active Substance: DEXTROAMPHETAMINE
     Indication: PRODUCT USED FOR UNKNOWN INDICATION

REACTIONS (2)
  - Nerve injury [Unknown]
  - Product preparation error [Unknown]

NARRATIVE: CASE EVENT DATE: 20180625
